FAERS Safety Report 26116920 (Version 1)
Quarter: 2025Q4

REPORT INFORMATION
  Report Type: Spontaneous
  Country: EU (occurrence: EU)
  Receive Date: 20251203
  Receipt Date: 20251203
  Transmission Date: 20260118
  Serious: Yes (Hospitalization, Other)
  Sender: CELLTRION
  Company Number: EU-CELLTRION INC.-2025DE007979

PATIENT

DRUGS (5)
  1. INFLIXIMAB [Suspect]
     Active Substance: INFLIXIMAB
     Indication: Axial spondyloarthritis
     Dosage: 120 MG, Q2WEEKS
     Route: 058
     Dates: start: 20240306, end: 20240609
  2. NAPROXEN [Concomitant]
     Active Substance: NAPROXEN
     Dosage: 500 MG, TWO DAYS PER WEEK
     Dates: start: 20240715
  3. NAPROXEN [Concomitant]
     Active Substance: NAPROXEN
     Dosage: 125 MG
     Dates: start: 20241115
  4. INFLIXIMAB [Concomitant]
     Active Substance: INFLIXIMAB
     Dosage: 300 MG SATURATION, THEN EVERY 6-8 WEEKS
     Dates: start: 20240207, end: 20240207
  5. RAMIPRIL [Concomitant]
     Active Substance: RAMIPRIL
     Dosage: 5 MG

REACTIONS (1)
  - Basal cell carcinoma [Recovered/Resolved]

NARRATIVE: CASE EVENT DATE: 20240610
